FAERS Safety Report 20846810 (Version 1)
Quarter: 2022Q2

REPORT INFORMATION
  Report Type: Report from Study
  Country: US (occurrence: US)
  Receive Date: 20220519
  Receipt Date: 20220519
  Transmission Date: 20220720
  Serious: Yes (Other)
  Sender: FDA-Public Use
  Company Number: US-BRISTOL-MYERS SQUIBB COMPANY-BMS-2021-102479

PATIENT
  Age: 78 Year
  Sex: Female
  Weight: 52.616 kg

DRUGS (12)
  1. ORENCIA [Suspect]
     Active Substance: ABATACEPT
     Indication: Rheumatoid arthritis
     Dosage: DOSE : UNAVAILABLE;     FREQ : PRESCRIBED ONCE WEEKLY
     Route: 042
     Dates: start: 202108, end: 202201
  2. ORENCIA [Suspect]
     Active Substance: ABATACEPT
     Indication: Rheumatoid arthritis
     Dosage: (UNSPECIFIED DOSE, EVERY 2 WEEKS). IN AUGUST 2021 ABATACEPT DOSAGE WAS CHANGED TO (UNSPECIFIED DOSE,
     Route: 058
     Dates: start: 202107
  3. ORENCIA [Suspect]
     Active Substance: ABATACEPT
     Route: 058
     Dates: start: 202201
  4. ORENCIA [Suspect]
     Active Substance: ABATACEPT
     Dosage: 87.5 MG/ML
     Route: 058
  5. ELIQUIS [Concomitant]
     Active Substance: APIXABAN
     Indication: Pulmonary embolism
     Route: 065
     Dates: start: 2020
  6. ELIQUIS [Concomitant]
     Active Substance: APIXABAN
     Indication: Cerebrovascular accident prophylaxis
  7. ASPIRIN [Concomitant]
     Active Substance: ASPIRIN
     Indication: Product used for unknown indication
     Dosage: UNKNOWN
     Route: 065
  8. ATENOLOL [Concomitant]
     Active Substance: ATENOLOL
     Indication: Product used for unknown indication
     Route: 065
  9. DILTIAZEM [Concomitant]
     Active Substance: DILTIAZEM
     Indication: Product used for unknown indication
     Route: 065
  10. FOLIC ACID [Concomitant]
     Active Substance: FOLIC ACID
     Indication: Product used for unknown indication
     Dosage: TAKING 32 YEARS
     Route: 065
  11. FUROSEMIDE [Concomitant]
     Active Substance: FUROSEMIDE
     Indication: Blood pressure measurement
     Route: 065
  12. LOSARTAN [Concomitant]
     Active Substance: LOSARTAN
     Indication: Product used for unknown indication
     Route: 065
     Dates: start: 2020

REACTIONS (10)
  - Pain in extremity [Not Recovered/Not Resolved]
  - Pain [Unknown]
  - Arthralgia [Unknown]
  - Drug ineffective [Unknown]
  - Condition aggravated [Unknown]
  - Treatment noncompliance [Unknown]
  - Drug intolerance [Unknown]
  - COVID-19 [Unknown]
  - Thrombosis [Unknown]
  - Prescribed underdose [Unknown]

NARRATIVE: CASE EVENT DATE: 20211004
